FAERS Safety Report 10184174 (Version 2)
Quarter: 2014Q2

REPORT INFORMATION
  Report Type: Spontaneous
  Country: IL (occurrence: IL)
  Receive Date: 20140520
  Receipt Date: 20140528
  Transmission Date: 20141212
  Serious: Yes (Other)
  Sender: FDA-Public Use
  Company Number: IL-TEVA-482016ISR

PATIENT
  Sex: Male

DRUGS (1)
  1. FUSID [Suspect]
     Indication: OEDEMA PERIPHERAL
     Dosage: 1 TABLET DAILY;
     Route: 048
     Dates: start: 20140507, end: 20140508

REACTIONS (6)
  - Haemorrhage [Unknown]
  - Oedema [Not Recovered/Not Resolved]
  - Blood pressure increased [Unknown]
  - Peripheral swelling [Unknown]
  - Dysstasia [Not Recovered/Not Resolved]
  - Gait disturbance [Not Recovered/Not Resolved]
